FAERS Safety Report 8495588-8 (Version None)
Quarter: 2012Q3

REPORT INFORMATION
  Report Type: 
  Country: None (occurrence: None)
  Receive Date: 20120709
  Receipt Date: 20120703
  Transmission Date: 20120928
  Serious: Yes (Death, Hospitalization)
  Sender: FDA-Public Use
  Company Number: DE-ROCHE-1009730

PATIENT
  Age: 54 Year
  Sex: Male
  Weight: 88 kg

DRUGS (11)
  1. METAMIZOL [Concomitant]
     Dates: start: 20111017
  2. FENTANYL [Concomitant]
     Dosage: 25 UG/H/L/L
     Dates: start: 20111121
  3. MOVIPREP [Concomitant]
     Dates: start: 20111017
  4. DEXAMETHASONE SODIUM PHOSPHATE [Concomitant]
     Dates: start: 20111122
  5. RESTEX [Concomitant]
     Dosage: 100/25 MG
     Dates: start: 20111025
  6. VEMURAFENIB [Suspect]
     Indication: METASTATIC MALIGNANT MELANOMA
     Dosage: LAST DOSE PRIOR TO SAE 01 NOV 2011
     Route: 048
     Dates: start: 20111101
  7. FENTANYL [Concomitant]
     Dosage: 12 UG/H/L/L
     Dates: start: 20111017, end: 20111121
  8. ZOPICLON [Concomitant]
     Dates: start: 20111025
  9. DEXAMETHASONE SODIUM PHOSPHATE [Concomitant]
     Dates: start: 20111026, end: 20111121
  10. IBUPROFEN [Concomitant]
     Dates: start: 20111027, end: 20111122
  11. PANTOPRAZOLE [Concomitant]
     Dates: start: 20111027

REACTIONS (3)
  - HYDROCEPHALUS [None]
  - ANAEMIA [None]
  - GENERAL PHYSICAL HEALTH DETERIORATION [None]
